FAERS Safety Report 10523067 (Version 2)
Quarter: 2021Q1

REPORT INFORMATION
  Report Type: Spontaneous
  Country: US (occurrence: US)
  Receive Date: 20141016
  Receipt Date: 20210219
  Transmission Date: 20210419
  Serious: Yes (Other)
  Sender: FDA-Public Use
  Company Number: US-BAUSCH-BL-2014-006196

PATIENT

DRUGS (1)
  1. MURO 128 [Suspect]
     Active Substance: SODIUM CHLORIDE
     Indication: PRODUCT USED FOR UNKNOWN INDICATION
     Route: 065

REACTIONS (4)
  - Product quality issue [Unknown]
  - Pain [Unknown]
  - Expired product administered [Unknown]
  - Corneal abrasion [Unknown]

NARRATIVE: CASE EVENT DATE: 201409
